FAERS Safety Report 5466413-4 (Version None)
Quarter: 2007Q3

REPORT INFORMATION
  Report Type: 
  Country: None (occurrence: None)
  Receive Date: 20070820
  Receipt Date: 20070503
  Transmission Date: 20080115
  Serious: No
  Sender: FDA-Public Use
  Company Number: WAES 0705USA05679

PATIENT
  Age: 61 Year
  Sex: Male

DRUGS (4)
  1. JANUVIA [Suspect]
     Indication: TYPE 2 DIABETES MELLITUS
     Dosage: 100 MG/DAILY/PO; 100 MG/DAILY/PO
     Route: 048
     Dates: start: 20070403, end: 20070101
  2. JANUVIA [Suspect]
     Indication: TYPE 2 DIABETES MELLITUS
     Dosage: 100 MG/DAILY/PO; 100 MG/DAILY/PO
     Route: 048
     Dates: start: 20070101
  3. LIPITOR [Concomitant]
  4. NORVASC [Concomitant]

REACTIONS (2)
  - EPISTAXIS [None]
  - SEASONAL ALLERGY [None]
